FAERS Safety Report 6532282-4 (Version None)
Quarter: 2010Q1

REPORT INFORMATION
  Report Type: 
  Country: None (occurrence: None)
  Receive Date: 20100108
  Receipt Date: 20091228
  Transmission Date: 20100710
  Serious: Yes (Other)
  Sender: FDA-Public Use
  Company Number: IN-BRISTOL-MYERS SQUIBB COMPANY-14914592

PATIENT
  Age: 21 Year
  Sex: Male

DRUGS (4)
  1. BLEOMYCIN SULFATE [Suspect]
     Indication: HODGKIN'S DISEASE STAGE III
     Dosage: RECEIVED 7 CYCLES OF DOXORUBICIN, BLEOMYCIN, VINBLASTINE AND DACARBAZINE.
     Dates: start: 20070201, end: 20070801
  2. ADRIAMYCIN PFS [Suspect]
     Indication: HODGKIN'S DISEASE STAGE III
     Dosage: RECEIVED 7 CYCLES OF DOXORUBICIN, BLEOMYCIN, VINBLASTINE AND DACARBAZINE.
     Dates: start: 20070201, end: 20070801
  3. VINBLASTINE [Suspect]
     Indication: HODGKIN'S DISEASE STAGE III
     Dosage: RECEIVED 7 CYCLES OF DOXORUBICIN, BLEOMYCIN, VINBLASTINE AND DACARBAZINE.
     Dates: start: 20070201, end: 20070401
  4. DACARBAZINE [Suspect]
     Indication: HODGKIN'S DISEASE STAGE III
     Dosage: RECEIVED 7 CYCLES OF DOXORUBICIN, BLEOMYCIN, VINBLASTINE AND DACARBAZINE.
     Dates: start: 20070201, end: 20070401

REACTIONS (2)
  - PULMONARY TOXICITY [None]
  - URETHRAL STENOSIS [None]
